FAERS Safety Report 8015939-8 (Version None)
Quarter: 2011Q4

REPORT INFORMATION
  Report Type: 
  Country: None (occurrence: None)
  Receive Date: 20111230
  Receipt Date: 20111222
  Transmission Date: 20120403
  Serious: Yes (Hospitalization)
  Sender: FDA-Public Use
  Company Number: US-ROCHE-1024411

PATIENT
  Age: 63 Year
  Sex: Female
  Weight: 63 kg

DRUGS (8)
  1. AVASTIN [Suspect]
     Indication: FALLOPIAN TUBE CANCER
     Dosage: 15 MG/KG IV OVER 30-90 MINUTES ON DAY 1
     Route: 042
     Dates: start: 20111130
  2. DIGOXIN [Concomitant]
  3. TRAZODONE HCL [Concomitant]
  4. WARFARIN SODIUM [Concomitant]
  5. NEURONTIN [Concomitant]
  6. FOSBRETABULIN [Suspect]
     Indication: FALLOPIAN TUBE CANCER
     Dosage: OVER 10 MINUTES ON DAY 1
     Route: 042
     Dates: start: 20111130
  7. PROZAC [Concomitant]
  8. SYNTHROID [Concomitant]

REACTIONS (5)
  - ELECTROCARDIOGRAM QT PROLONGED [None]
  - FATIGUE [None]
  - COGNITIVE DISORDER [None]
  - TROPONIN I INCREASED [None]
  - ATAXIA [None]
